FAERS Safety Report 12380341 (Version 1)
Quarter: 2016Q2

REPORT INFORMATION
  Report Type: Spontaneous
  Country: US (occurrence: US)
  Receive Date: 20160518
  Receipt Date: 20160518
  Transmission Date: 20160815
  Serious: No
  Sender: FDA-Public Use
  Company Number: US-TEVA-659704USA

PATIENT
  Sex: Female

DRUGS (1)
  1. NUVIGIL [Suspect]
     Active Substance: ARMODAFINIL
     Dosage: 250 MILLIGRAM DAILY;
     Route: 065

REACTIONS (6)
  - Feeling abnormal [Unknown]
  - Fatigue [Unknown]
  - Agitation [Unknown]
  - Drug dose omission [Unknown]
  - Panic attack [Unknown]
  - Accident [Unknown]

NARRATIVE: CASE EVENT DATE: 2016
